FAERS Safety Report 7761045-7 (Version None)
Quarter: 2011Q3

REPORT INFORMATION
  Report Type: 
  Country: None (occurrence: None)
  Receive Date: 20110920
  Receipt Date: 20110908
  Transmission Date: 20111222
  Serious: Yes (Other)
  Sender: FDA-Public Use
  Company Number: CH-BAYER-201041059GPV

PATIENT
  Age: 24 Year
  Sex: Male

DRUGS (3)
  1. EXTAVIA [Suspect]
     Indication: MULTIPLE SCLEROSIS
     Route: 065
     Dates: start: 20100913
  2. SALOSPIR [Concomitant]
     Dosage: 1 DF, QD
  3. MEDROL [Concomitant]
     Dosage: 0.5 DF, QD

REACTIONS (4)
  - ALANINE AMINOTRANSFERASE INCREASED [None]
  - AUTOANTIBODY POSITIVE [None]
  - BLOOD IMMUNOGLOBULIN M INCREASED [None]
  - BLOOD IMMUNOGLOBULIN G INCREASED [None]
